FAERS Safety Report 10531358 (Version 1)
Quarter: 2014Q4

REPORT INFORMATION
  Report Type: Spontaneous
  Country: FR (occurrence: FR)
  Receive Date: 20141021
  Receipt Date: 20141021
  Transmission Date: 20150529
  Serious: Yes (Hospitalization, Other)
  Sender: FDA-Public Use
  Company Number: FR-WATSON-2014-22273

PATIENT
  Age: 35 Year
  Sex: Male

DRUGS (3)
  1. BACLOFEN (UNKNOWN) [Suspect]
     Active Substance: BACLOFEN
     Indication: SUICIDE ATTEMPT
  2. BACLOFEN (UNKNOWN) [Suspect]
     Active Substance: BACLOFEN
     Indication: BINGE DRINKING
     Dosage: 2000 MG, SINGLE
     Route: 065
  3. ETHANOL [Suspect]
     Active Substance: ALCOHOL
     Indication: SUICIDE ATTEMPT
     Dosage: UNK
     Route: 065

REACTIONS (5)
  - Hypoxia [Unknown]
  - Blood creatine phosphokinase increased [Not Recovered/Not Resolved]
  - Overdose [Unknown]
  - Suicide attempt [Recovered/Resolved]
  - Lactic acidosis [Unknown]
